FAERS Safety Report 15858874 (Version 1)
Quarter: 2019Q1

REPORT INFORMATION
  Report Type: Spontaneous
  Country: FR (occurrence: FR)
  Receive Date: 20190123
  Receipt Date: 20190123
  Transmission Date: 20190417
  Serious: Yes (Disabling)
  Sender: FDA-Public Use
  Company Number: FR-GLAXOSMITHKLINE-FR2019008267

PATIENT
  Age: 80 Year
  Sex: Male
  Weight: 72 kg

DRUGS (5)
  1. METFORMIN [Concomitant]
     Active Substance: METFORMIN HYDROCHLORIDE
     Indication: HYPERGLYCAEMIA
     Dosage: 1700 MG, QD
     Route: 048
  2. BISOPROLOL FUMARAT [Concomitant]
     Active Substance: BISOPROLOL FUMARATE
     Indication: HYPERTENSION
     Dosage: 10 MG, QD
     Route: 048
  3. MALARONE [Suspect]
     Active Substance: ATOVAQUONE\PROGUANIL HYDROCHLORIDE
     Indication: MALARIA PROPHYLAXIS
     Dosage: 1 DF, QD
     Route: 048
     Dates: start: 20170122, end: 20170314
  4. COUMADINE [Concomitant]
     Active Substance: WARFARIN SODIUM
     Indication: ATRIAL FIBRILLATION
     Dosage: 4 MG, QD
     Route: 048
  5. PERINDOPRIL [Concomitant]
     Active Substance: PERINDOPRIL
     Indication: HYPERTENSION
     Dosage: 5 MG, QD
     Route: 048

REACTIONS (1)
  - Rheumatic disorder [Recovered/Resolved]

NARRATIVE: CASE EVENT DATE: 20170215
